FAERS Safety Report 9888990 (Version 1)
Quarter: 2014Q1

REPORT INFORMATION
  Report Type: Spontaneous
  Country: US (occurrence: None)
  Receive Date: 20140210
  Receipt Date: 20140210
  Transmission Date: 20141002
  Serious: No
  Sender: FDA-Public Use
  Company Number: None

PATIENT
  Age: 50 Year
  Sex: Female
  Weight: 68.04 kg

DRUGS (2)
  1. MUCINEX [Suspect]
     Indication: COUGH
     Dosage: MAX DOSE PER 4 HR TAKEN BY MOUTH
     Route: 048
  2. MUCINEX [Suspect]
     Indication: NASOPHARYNGITIS
     Dosage: MAX DOSE PER 4 HR TAKEN BY MOUTH
     Route: 048

REACTIONS (5)
  - Urticaria [None]
  - Rash [None]
  - Pharyngeal oedema [None]
  - Abdominal pain upper [None]
  - Local swelling [None]
